FAERS Safety Report 11899294 (Version 2)
Quarter: 2016Q1

REPORT INFORMATION
  Report Type: Spontaneous
  Country: DE (occurrence: DE)
  Receive Date: 20160108
  Receipt Date: 20160204
  Transmission Date: 20160526
  Serious: Yes (Hospitalization)
  Sender: FDA-Public Use
  Company Number: DE-TEVA-621998GER

PATIENT
  Age: 28 Year
  Sex: Male

DRUGS (3)
  1. METOCLORAMID [Suspect]
     Active Substance: METOCLOPRAMIDE
     Indication: VOMITING
  2. RINGER-LAKTAT [Concomitant]
     Indication: FLUID REPLACEMENT
  3. METOCLORAMID [Suspect]
     Active Substance: METOCLOPRAMIDE
     Indication: NAUSEA
     Dosage: ONCE
     Route: 042

REACTIONS (1)
  - Chromaturia [Recovered/Resolved]
